FAERS Safety Report 4519491-0 (Version None)
Quarter: 2004Q4

REPORT INFORMATION
  Report Type: 
  Country: None (occurrence: None)
  Receive Date: 20041202
  Receipt Date: 20041119
  Transmission Date: 20050328
  Serious: Yes (Hospitalization)
  Sender: FDA-Public Use
  Company Number: 2004AP05937

PATIENT
  Age: 62 Year
  Sex: Female

DRUGS (12)
  1. IRESSA [Suspect]
     Indication: BREAST CANCER METASTATIC
     Dosage: 250 MG DAILY PO
     Route: 048
     Dates: start: 20040708, end: 20041114
  2. DOCETAXEL [Suspect]
     Indication: BREAST CANCER METASTATIC
  3. ZOFRAN [Concomitant]
  4. AFIPRAN [Concomitant]
  5. MORFINSULFAT [Concomitant]
  6. DICLOCIL [Concomitant]
  7. MEDROL [Concomitant]
  8. DURAGESIC [Concomitant]
  9. STILNOCT [Concomitant]
  10. SOMADRIL [Concomitant]
  11. PARCET [Concomitant]
  12. CIPRAMIL [Concomitant]

REACTIONS (11)
  - CATHETER RELATED INFECTION [None]
  - DEPRESSION [None]
  - DIARRHOEA [None]
  - DISEASE PROGRESSION [None]
  - FACIAL PARESIS [None]
  - NAUSEA [None]
  - NEUROPATHY [None]
  - PARAESTHESIA [None]
  - PNEUMONIA [None]
  - SEPSIS [None]
  - TINNITUS [None]
